FAERS Safety Report 5048577-X (Version None)
Quarter: 2006Q2

REPORT INFORMATION
  Report Type: 
  Country: None (occurrence: None)
  Receive Date: 20060601
  Receipt Date: 20060308
  Transmission Date: 20061013
  Serious: No
  Sender: FDA-Public Use
  Company Number: US200603002008

PATIENT
  Age: 75 Year
  Sex: Female

DRUGS (6)
  1. CYMBALTA [Suspect]
     Indication: DEPRESSION
     Dosage: 30 MG, DAILY (1/D)
     Dates: start: 20060201, end: 20060101
  2. HYZAAR [Concomitant]
  3. SYNTHROID [Concomitant]
  4. PAXIL [Concomitant]
  5. TRANXENE [Concomitant]
  6. MEVACOR [Concomitant]

REACTIONS (4)
  - CONSTIPATION [None]
  - EAR DISORDER [None]
  - EAR INFECTION [None]
  - FEELING ABNORMAL [None]
